FAERS Safety Report 11876897 (Version 1)
Quarter: 2015Q4

REPORT INFORMATION
  Report Type: Spontaneous
  Country: BE (occurrence: BE)
  Receive Date: 20151229
  Receipt Date: 20151229
  Transmission Date: 20160305
  Serious: Yes (Hospitalization)
  Sender: FDA-Public Use
  Company Number: BE-TEVA-621062ISR

PATIENT
  Age: 69 Year
  Sex: Male

DRUGS (10)
  1. ZYLORIC [Concomitant]
     Active Substance: ALLOPURINOL
  2. CELLCEPT [Concomitant]
     Active Substance: MYCOPHENOLATE MOFETIL\MYCOPHENOLATE MOFETIL HYDROCHLORIDE
  3. NEORAL [Concomitant]
     Active Substance: CYCLOSPORINE
  4. AMCONCOR [Concomitant]
  5. INSULINE [Concomitant]
     Active Substance: INSULIN NOS
  6. ASAFLOW [Concomitant]
     Active Substance: ASPIRIN
  7. NAHCO3 [Concomitant]
     Active Substance: SODIUM BICARBONATE
  8. SILDENAFIL. [Suspect]
     Active Substance: SILDENAFIL
     Indication: CARDIAC FAILURE
     Dosage: 150 MILLIGRAM DAILY;
     Route: 048
     Dates: start: 20140108, end: 20150108
  9. PLAVIX [Concomitant]
     Active Substance: CLOPIDOGREL BISULFATE
  10. CRESTOR [Concomitant]
     Active Substance: ROSUVASTATIN CALCIUM

REACTIONS (1)
  - Haemothorax [Unknown]

NARRATIVE: CASE EVENT DATE: 20140707
